FAERS Safety Report 15557274 (Version 2)
Quarter: 2018Q4

REPORT INFORMATION
  Report Type: Spontaneous
  Country: US (occurrence: US)
  Receive Date: 20181026
  Receipt Date: 20181031
  Transmission Date: 20190205
  Serious: Yes (Hospitalization)
  Sender: FDA-Public Use
  Company Number: US-NOVOPROD-628455

PATIENT
  Sex: Female

DRUGS (2)
  1. SAXENDA [Suspect]
     Active Substance: LIRAGLUTIDE
     Indication: WEIGHT CONTROL
     Dosage: UNK
     Route: 058
  2. SAXENDA [Suspect]
     Active Substance: LIRAGLUTIDE
     Indication: DIABETES MELLITUS

REACTIONS (7)
  - Diarrhoea [Unknown]
  - Renal failure [Unknown]
  - Circulatory collapse [Unknown]
  - Gastrointestinal necrosis [Unknown]
  - Memory impairment [Unknown]
  - Balance disorder [Unknown]
  - Sepsis [Unknown]
